FAERS Safety Report 5303987-8 (Version None)
Quarter: 2007Q1

REPORT INFORMATION
  Report Type: 
  Country: None (occurrence: None)
  Receive Date: 20070201
  Receipt Date: 20061116
  Transmission Date: 20070707
  Serious: No
  Sender: FDA-Public Use
  Company Number: 2006PV025345

PATIENT
  Age: 85 Year
  Sex: Female

DRUGS (5)
  1. BYETTA [Suspect]
     Indication: DIABETES MELLITUS NON-INSULIN-DEPENDENT
     Dosage: 5 MCG; BID; SC
     Route: 058
     Dates: start: 20061016
  2. GLIPIZIDE [Concomitant]
  3. STARLIX [Concomitant]
  4. METOPROLOL SUCCINATE [Concomitant]
  5. DYAZIDE [Concomitant]

REACTIONS (7)
  - ANOREXIA [None]
  - ASTHENIA [None]
  - BLOOD PRESSURE DECREASED [None]
  - HYPOVENTILATION [None]
  - INFREQUENT BOWEL MOVEMENTS [None]
  - SOMNOLENCE [None]
  - WEIGHT DECREASED [None]
